FAERS Safety Report 19478218 (Version 1)
Quarter: 2021Q2

REPORT INFORMATION
  Report Type: Spontaneous
  Country: TW (occurrence: TW)
  Receive Date: 20210630
  Receipt Date: 20210630
  Transmission Date: 20210717
  Serious: Yes (Life-Threatening, Other)
  Sender: FDA-Public Use
  Company Number: TW-PFIZER INC-2021730974

PATIENT
  Age: 59 Year
  Sex: Male

DRUGS (3)
  1. TACROLIMUS. [Suspect]
     Active Substance: TACROLIMUS
     Dosage: UNK
     Dates: start: 20210411, end: 20210419
  2. FENTANYL. [Suspect]
     Active Substance: FENTANYL
     Dosage: UNK
     Dates: start: 20210410, end: 20210418
  3. PROSTIN VR PEDIATRIC [Suspect]
     Active Substance: ALPROSTADIL
     Indication: THERAPEUTIC PROCEDURE
     Dosage: USE IT NOW
     Route: 042
     Dates: start: 20210413, end: 20210415

REACTIONS (9)
  - Cardiogenic shock [Recovering/Resolving]
  - Hypotension [Unknown]
  - Torsade de pointes [Recovering/Resolving]
  - Arrhythmia [Unknown]
  - Cardiac arrest [Unknown]
  - Cardiac septal hypertrophy [Unknown]
  - Off label use [Unknown]
  - Systolic anterior motion of mitral valve [Unknown]
  - Coronary artery disease [Unknown]

NARRATIVE: CASE EVENT DATE: 20210415
